FAERS Safety Report 25206449 (Version 1)
Quarter: 2025Q2

REPORT INFORMATION
  Report Type: Spontaneous
  Country: US (occurrence: US)
  Receive Date: 20250417
  Receipt Date: 20250417
  Transmission Date: 20250716
  Serious: Yes (Life-Threatening, Hospitalization, Other)
  Sender: LUPIN
  Company Number: US-LUPIN PHARMACEUTICALS INC.-2025-03210

PATIENT
  Age: 88 Year
  Sex: Male

DRUGS (2)
  1. PHENELZINE [Interacting]
     Active Substance: PHENELZINE
     Indication: Product used for unknown indication
     Route: 065
  2. ZYPREXA [Interacting]
     Active Substance: OLANZAPINE
     Indication: Agitation
     Route: 065

REACTIONS (3)
  - Neuroleptic malignant syndrome [Recovered/Resolved]
  - Acute kidney injury [Unknown]
  - Drug interaction [Unknown]
